FAERS Safety Report 9948963 (Version 2)
Quarter: 2014Q2

REPORT INFORMATION
  Report Type: Spontaneous
  Country: FR (occurrence: FR)
  Receive Date: 20140303
  Receipt Date: 20140605
  Transmission Date: 20141212
  Serious: Yes (Hospitalization)
  Sender: FDA-Public Use
  Company Number: FR-ABBVIE-14P-056-1208344-00

PATIENT
  Age: 58 Year
  Sex: Male

DRUGS (1)
  1. LIPANTHYL [Suspect]
     Indication: DYSLIPIDAEMIA
     Route: 048
     Dates: start: 1995, end: 201401

REACTIONS (2)
  - Renal cancer stage II [Unknown]
  - Metastases to thyroid [Unknown]
